FAERS Safety Report 6984518-3 (Version None)
Quarter: 2010Q3

REPORT INFORMATION
  Report Type: 
  Country: None (occurrence: None)
  Receive Date: 20100915
  Receipt Date: 20100901
  Transmission Date: 20110219
  Serious: Yes (Hospitalization)
  Sender: FDA-Public Use
  Company Number: US-RANBAXY-2010US-37846

PATIENT

DRUGS (2)
  1. GABAPENTIN [Suspect]
     Indication: PRODUCT USED FOR UNKNOWN INDICATION
     Dosage: 300 MG, AT MORNING AND AFTERNOON
     Route: 065
  2. GABAPENTIN [Suspect]
     Dosage: 100 MG, AT NIGHT

REACTIONS (1)
  - WITHDRAWAL SYNDROME [None]
